FAERS Safety Report 14845551 (Version 2)
Quarter: 2018Q2

REPORT INFORMATION
  Report Type: Spontaneous
  Country: US (occurrence: US)
  Receive Date: 20180504
  Receipt Date: 20180614
  Transmission Date: 20180711
  Serious: No
  Sender: FDA-Public Use
  Company Number: US-ASTRAZENECA-2018SE44910

PATIENT
  Age: 29931 Day
  Sex: Female
  Weight: 62.6 kg

DRUGS (6)
  1. AMOXICILLIN. [Concomitant]
     Active Substance: AMOXICILLIN
     Indication: TOOTH DISORDER
     Dosage: 500.0UG UNKNOWN
     Route: 048
  2. LEVOTHYROXINE. [Concomitant]
     Active Substance: LEVOTHYROXINE
     Indication: THYROID DISORDER
     Route: 048
  3. ROSUVASTATIN CALCIUM. [Concomitant]
     Active Substance: ROSUVASTATIN CALCIUM
     Indication: HYPERTENSION
     Route: 048
     Dates: start: 201802
  4. BABY ASA [Concomitant]
     Active Substance: ASPIRIN
     Indication: CARDIAC DISORDER
     Route: 048
     Dates: start: 2011
  5. TUDORZA PRESSAIR [Suspect]
     Active Substance: ACLIDINIUM BROMIDE
     Indication: EMPHYSEMA
     Route: 055
     Dates: start: 2018
  6. VITAMINS NOS [Concomitant]
     Active Substance: VITAMINS
     Route: 048

REACTIONS (5)
  - Drug dose omission [Unknown]
  - Intentional product misuse [Unknown]
  - Dyspnoea [Recovered/Resolved]
  - Underdose [Unknown]
  - Device malfunction [Unknown]

NARRATIVE: CASE EVENT DATE: 20180403
